FAERS Safety Report 19706771 (Version 1)
Quarter: 2021Q3

REPORT INFORMATION
  Report Type: Spontaneous
  Country: NL (occurrence: NL)
  Receive Date: 20210817
  Receipt Date: 20210817
  Transmission Date: 20211014
  Serious: Yes (Other)
  Sender: FDA-Public Use
  Company Number: NL-TEVA-2021-NL-1941154

PATIENT
  Age: 74 Year
  Sex: Male
  Weight: 68 kg

DRUGS (1)
  1. DEXAMETHASON OOGDR 1MG/ML (BASE) / BRAND NAME NOT SPECIFIED [Suspect]
     Active Substance: DEXAMETHASONE SODIUM PHOSPHATE
     Indication: CATARACT
     Dosage: UNIT DOSE :1 DOSAGE FORMS ,FIRST 4X A DAY, NOW 3X A DAY,THERAPY END DATE :ASKU
     Dates: start: 20210623

REACTIONS (3)
  - Malaise [Not Recovered/Not Resolved]
  - Multiple sclerosis [Not Recovered/Not Resolved]
  - Arrhythmia [Not Recovered/Not Resolved]

NARRATIVE: CASE EVENT DATE: 20210723
